FAERS Safety Report 4762017-7 (Version None)
Quarter: 2005Q3

REPORT INFORMATION
  Report Type: 
  Country: None (occurrence: None)
  Receive Date: 20050831
  Receipt Date: 20050510
  Transmission Date: 20060218
  Serious: No
  Sender: FDA-Public Use
  Company Number: PHEH2005US05347

PATIENT
  Age: 66 Year
  Sex: Female

DRUGS (4)
  1. ENABLEX [Suspect]
     Indication: POLLAKIURIA
     Dosage: 15 MG QD ORAL
     Route: 048
     Dates: start: 20050504, end: 20050508
  2. EVISTA [Concomitant]
  3. SYNTHROID [Concomitant]
  4. FOSAMAX [Concomitant]

REACTIONS (3)
  - DYSPHONIA [None]
  - HEADACHE [None]
  - HYPERHIDROSIS [None]
